FAERS Safety Report 9748901 (Version 2)
Quarter: 2013Q4

REPORT INFORMATION
  Report Type: Spontaneous
  Country: US (occurrence: US)
  Receive Date: 20131212
  Receipt Date: 20131212
  Transmission Date: 20140711
  Serious: No
  Sender: FDA-Public Use
  Company Number: US-INCYTE CORPORATION-2013IN001093

PATIENT
  Sex: Female

DRUGS (3)
  1. JAKAFI [Suspect]
     Indication: MYELOFIBROSIS
     Dosage: 20 MG, BID
     Route: 048
     Dates: start: 201309
  2. VITAMIN D [Concomitant]
  3. ASPIRIN [Concomitant]
     Dosage: 325 MG, Q WEEK

REACTIONS (1)
  - Dyspepsia [Not Recovered/Not Resolved]
